FAERS Safety Report 20076073 (Version 1)
Quarter: 2021Q4

REPORT INFORMATION
  Report Type: Spontaneous
  Country: CN (occurrence: CN)
  Receive Date: 20211116
  Receipt Date: 20211116
  Transmission Date: 20220303
  Serious: Yes (Hospitalization)
  Sender: FDA-Public Use
  Company Number: CN-ABBOTT-2021A-1342541

PATIENT
  Age: 52 Year
  Sex: Male
  Weight: 72 kg

DRUGS (2)
  1. FENOFIBRATE [Suspect]
     Active Substance: FENOFIBRATE
     Indication: Lipids increased
     Dosage: DAILY DOSE: 0.2 GRAM
     Route: 048
     Dates: start: 20211027, end: 20211031
  2. EZETIMIBE [Concomitant]
     Active Substance: EZETIMIBE
     Indication: Lipids increased
     Dosage: DAILY DOSE: 10 MILLIGRAM
     Route: 048
     Dates: start: 20211027, end: 20211103

REACTIONS (1)
  - Transaminases increased [Unknown]

NARRATIVE: CASE EVENT DATE: 20211031
